FAERS Safety Report 12319971 (Version 3)
Quarter: 2016Q2

REPORT INFORMATION
  Report Type: Report from Study
  Country: US (occurrence: US)
  Receive Date: 20160429
  Receipt Date: 20160524
  Transmission Date: 20160815
  Serious: Yes (Hospitalization)
  Sender: FDA-Public Use
  Company Number: US-ACTELION-A-US2016-135066

PATIENT
  Age: 84 Year
  Sex: Male

DRUGS (15)
  1. VITAMIN B12 [Concomitant]
     Active Substance: CYANOCOBALAMIN
  2. CALAN [Concomitant]
     Active Substance: VERAPAMIL HYDROCHLORIDE
  3. MACITENTAN [Suspect]
     Active Substance: MACITENTAN
     Indication: PULMONARY ARTERIAL HYPERTENSION
     Dosage: 10 MG, QD
     Route: 048
     Dates: start: 201603, end: 201604
  4. CRESTOR [Concomitant]
     Active Substance: ROSUVASTATIN CALCIUM
  5. CYMBALTA [Concomitant]
     Active Substance: DULOXETINE HYDROCHLORIDE
  6. SOTALOL. [Concomitant]
     Active Substance: SOTALOL
  7. MULTIVITAMIN [Concomitant]
     Active Substance: VITAMINS
  8. NAC [Concomitant]
  9. VITAMIN C [Concomitant]
     Active Substance: ASCORBIC ACID
  10. LUTEIN [Concomitant]
     Active Substance: LUTEIN
  11. OMEGA 3 [Concomitant]
     Active Substance: OMEGA-3 FATTY ACIDS
  12. XANAX [Concomitant]
     Active Substance: ALPRAZOLAM
  13. VITAMIN D [Concomitant]
     Active Substance: CHOLECALCIFEROL
  14. COQ10 [Concomitant]
     Active Substance: UBIDECARENONE
  15. GLIPIZIDE. [Concomitant]
     Active Substance: GLIPIZIDE

REACTIONS (4)
  - Blood urine present [Recovered/Resolved]
  - Rectal haemorrhage [Recovered/Resolved]
  - Malaise [Recovered/Resolved]
  - Haemorrhage [Unknown]

NARRATIVE: CASE EVENT DATE: 20160410
